FAERS Safety Report 8353917-X (Version None)
Quarter: 2012Q2

REPORT INFORMATION
  Report Type: 
  Country: None (occurrence: None)
  Receive Date: 20120511
  Receipt Date: 20120312
  Transmission Date: 20120825
  Serious: No
  Sender: FDA-Public Use
  Company Number: US-GLAXOSMITHKLINE-A0969334A

PATIENT
  Age: 61 Year
  Sex: Female

DRUGS (5)
  1. TYKERB [Suspect]
     Indication: BREAST CANCER
     Dosage: 250MG PER DAY
     Route: 048
     Dates: start: 20120206
  2. XELODA [Concomitant]
  3. CARDIZEM [Concomitant]
  4. LITHIUM CARBONATE [Concomitant]
  5. OLANZAPINE [Concomitant]

REACTIONS (1)
  - VOMITING [None]
